FAERS Safety Report 9792215 (Version 2)
Quarter: 2014Q1

REPORT INFORMATION
  Report Type: Spontaneous
  Country: US (occurrence: US)
  Receive Date: 20140102
  Receipt Date: 20140212
  Transmission Date: 20141002
  Serious: Yes (Other)
  Sender: FDA-Public Use
  Company Number: US-TEVA-452832USA

PATIENT
  Age: 28 Year
  Sex: Female
  Weight: 70.37 kg

DRUGS (3)
  1. PARAGARD 380A [Suspect]
     Indication: CONTRACEPTION
     Dates: start: 20131002, end: 20131018
  2. PARAGARD 380A [Suspect]
     Dates: start: 20131022
  3. SINGULAIR [Concomitant]
     Indication: ASTHMA

REACTIONS (1)
  - Device dislocation [Recovered/Resolved]
